FAERS Safety Report 9628355 (Version 1)
Quarter: 2013Q4

REPORT INFORMATION
  Report Type: Spontaneous
  Country: US (occurrence: US)
  Receive Date: 20131017
  Receipt Date: 20131017
  Transmission Date: 20140711
  Serious: No
  Sender: FDA-Public Use
  Company Number: US-009507513-1310USA007537

PATIENT
  Sex: Male

DRUGS (1)
  1. DULERA [Suspect]
     Dosage: 200/5 MICROGRAM/ TWICE DAILY
     Route: 055

REACTIONS (2)
  - Formication [Recovered/Resolved]
  - Pruritus [Recovered/Resolved]
